FAERS Safety Report 16924706 (Version 1)
Quarter: 2019Q4

REPORT INFORMATION
  Report Type: Spontaneous
  Country: US (occurrence: US)
  Receive Date: 20190823
  Receipt Date: 20190823
  Transmission Date: 20200122
  Serious: Yes (Hospitalization)
  Sender: FDA-Public Use
  Company Number: None

PATIENT
  Age: 70 Year
  Sex: Male
  Weight: 77.11 kg

DRUGS (2)
  1. BABY ASPIRIN [Concomitant]
     Active Substance: ASPIRIN
  2. CIALIS [Suspect]
     Active Substance: TADALAFIL
     Indication: DRUG THERAPY
     Route: 048
     Dates: start: 20170111, end: 20190605

REACTIONS (2)
  - Blindness unilateral [None]
  - Retinal artery occlusion [None]

NARRATIVE: CASE EVENT DATE: 20190525
